FAERS Safety Report 12647193 (Version 1)
Quarter: 2016Q3

REPORT INFORMATION
  Report Type: Spontaneous
  Country: US (occurrence: None)
  Receive Date: 20160811
  Receipt Date: 20160811
  Transmission Date: 20161109
  Serious: No
  Sender: FDA-Public Use
  Company Number: None

PATIENT
  Age: 96 Year
  Sex: Male
  Weight: 70.31 kg

DRUGS (7)
  1. VALSARTIN [Concomitant]
  2. METOPROLOL SUCC [Concomitant]
     Active Substance: METOPROLOL SUCCINATE
  3. CYANICO BALAMIN [Concomitant]
  4. WARFARIN [Concomitant]
     Active Substance: WARFARIN
  5. QUETIAPINE FUMARATE. [Suspect]
     Active Substance: QUETIAPINE FUMARATE
     Indication: SLEEP DISORDER
     Dosage: 1 TABLET(S) AT BEDTIME TAKEN BY MOUTH
     Route: 048
  6. QUETIAPINE FUMARATE. [Suspect]
     Active Substance: QUETIAPINE FUMARATE
     Indication: ABNORMAL DREAMS
     Dosage: 1 TABLET(S) AT BEDTIME TAKEN BY MOUTH
     Route: 048
  7. ECOTRIN [Concomitant]
     Active Substance: ASPIRIN

REACTIONS (4)
  - Insomnia [None]
  - Thirst [None]
  - Balance disorder [None]
  - Disorientation [None]

NARRATIVE: CASE EVENT DATE: 20160808
